FAERS Safety Report 6767406-7 (Version None)
Quarter: 2010Q2

REPORT INFORMATION
  Report Type: 
  Country: None (occurrence: None)
  Receive Date: 20100611
  Receipt Date: 20100611
  Transmission Date: 20101027
  Serious: Yes (Hospitalization)
  Sender: FDA-Public Use
  Company Number: None

PATIENT
  Sex: Female
  Weight: 74.8435 kg

DRUGS (1)
  1. NAPROXEN [Suspect]
     Indication: CARPAL TUNNEL SYNDROME
     Dosage: 1 TWICE DAILY PO
     Route: 048
     Dates: start: 20100402, end: 20100407

REACTIONS (4)
  - HEART RATE INCREASED [None]
  - HYPOTENSION [None]
  - PUPILLARY REFLEX IMPAIRED [None]
  - VISUAL IMPAIRMENT [None]
